FAERS Safety Report 8830046 (Version 1)
Quarter: 2012Q4

REPORT INFORMATION
  Report Type: 
  Country: CH (occurrence: CH)
  Receive Date: 20121008
  Receipt Date: 20121008
  Transmission Date: 20130627
  Serious: Yes (Hospitalization)
  Sender: FDA-Public Use
  Company Number: PHHY2012CH084482

PATIENT
  Age: 56 Year
  Sex: Female

DRUGS (12)
  1. GLIVEC [Suspect]
     Indication: ACUTE LYMPHOCYTIC LEUKAEMIA
     Dosage: 400 mg, BID
     Route: 048
     Dates: start: 20120803, end: 20120809
  2. DEXAMETHASONE [Suspect]
     Dosage: 40 mg, QD
     Route: 048
     Dates: start: 20120803
  3. VINCRISTINE [Suspect]
     Indication: ACUTE LYMPHOCYTIC LEUKAEMIA
     Dosage: 2 mg, UNK
     Route: 042
     Dates: start: 20120803
  4. NOXAFIL [Suspect]
     Indication: ANTIFUNGAL TREATMENT
     Dosage: 200 mg, TID
     Route: 048
     Dates: start: 20120725, end: 20120809
  5. CHEMOTHERAPEUTICS [Concomitant]
     Dosage: UNK UKN, UNK
     Route: 037
     Dates: start: 20120803
  6. AMLODIPINE [Concomitant]
     Dosage: 10 mg, QD morning
     Route: 048
  7. WELLVONE [Concomitant]
     Dosage: 1500 mg, QD morning
     Route: 048
  8. MOTILIUM [Concomitant]
     Dosage: 10 mg, TID
     Route: 048
  9. ZOLPIDEM [Concomitant]
     Dosage: 10 mg, QD
     Route: 048
  10. ESOMEPRAZOLE [Concomitant]
     Dosage: 40 mg, UNK
     Dates: start: 20120719, end: 20120809
  11. CO-TRIMAZOLE [Concomitant]
     Dosage: 160 mg, 1 day/2
     Dates: start: 20120725
  12. GASTROGRAFIN [Concomitant]

REACTIONS (6)
  - Ileus paralytic [Recovered/Resolved]
  - Abdominal distension [Recovered/Resolved]
  - Mucosal inflammation [Recovered/Resolved]
  - Hyponatraemia [Recovered/Resolved]
  - Inappropriate antidiuretic hormone secretion [Recovered/Resolved]
  - Hypertension [Recovered/Resolved]
